FAERS Safety Report 5195926-8 (Version None)
Quarter: 2006Q4

REPORT INFORMATION
  Report Type: 
  Country: None (occurrence: None)
  Receive Date: 20061227
  Receipt Date: 20061218
  Transmission Date: 20070319
  Serious: Yes (Hospitalization)
  Sender: FDA-Public Use
  Company Number: S06-USA-04369-01

PATIENT
  Age: 48 Year
  Sex: Female

DRUGS (12)
  1. LEXAPRO [Suspect]
     Indication: DEPRESSION
     Dosage: 10 MG QD PO
     Route: 048
     Dates: start: 20061018, end: 20061103
  2. NITROGLYCERIN [Concomitant]
  3. GLUCOPHAGE [Concomitant]
  4. INSULIN [Concomitant]
  5. LIPITOR [Concomitant]
  6. HYZAAR [Concomitant]
  7. PRAZOSIN HCL [Concomitant]
  8. CAPTOPRIL [Concomitant]
  9. HYDROCHLOROTHIAZIDE [Concomitant]
  10. ATENOLOL [Concomitant]
  11. ULTRAM [Concomitant]
  12. ASPIRIN [Concomitant]

REACTIONS (12)
  - AMNESIA [None]
  - ERYTHEMA [None]
  - FEELING DRUNK [None]
  - FEELING HOT [None]
  - INTRACARDIAC THROMBUS [None]
  - LOCAL SWELLING [None]
  - MYOCARDIAL INFARCTION [None]
  - NAUSEA [None]
  - NIGHT SWEATS [None]
  - PERIPHERAL COLDNESS [None]
  - POSTOPERATIVE WOUND INFECTION [None]
  - STAPHYLOCOCCAL INFECTION [None]
